FAERS Safety Report 7815972-2 (Version None)
Quarter: 2011Q4

REPORT INFORMATION
  Report Type: 
  Country: None (occurrence: None)
  Receive Date: 20111014
  Receipt Date: 20111006
  Transmission Date: 20120403
  Serious: Yes (Hospitalization)
  Sender: FDA-Public Use
  Company Number: US-MERCK-1105USA01975

PATIENT
  Age: 50 Year
  Sex: Female
  Weight: 70 kg

DRUGS (9)
  1. FOSAMAX [Suspect]
     Indication: OSTEOPOROSIS PROPHYLAXIS
     Route: 048
     Dates: start: 19950101
  2. FOSAMAX [Suspect]
     Route: 048
     Dates: start: 20080101, end: 20080101
  3. FOSAMAX [Suspect]
     Route: 048
     Dates: start: 20030101, end: 20110309
  4. CALCIUM (UNSPECIFIED) [Concomitant]
     Route: 065
     Dates: start: 19980101
  5. ALENDRONATE SODIUM [Suspect]
     Indication: OSTEOPOROSIS PROPHYLAXIS
     Route: 048
     Dates: start: 20080101, end: 20090101
  6. ALENDRONATE SODIUM [Suspect]
     Route: 048
     Dates: start: 20090101
  7. PREMPRO [Concomitant]
     Route: 065
  8. ONE-A-DAY 50 PLUS [Concomitant]
     Route: 065
     Dates: start: 19980101
  9. FOSAMAX [Suspect]
     Route: 048
     Dates: start: 20100101

REACTIONS (16)
  - OSTEOPENIA [None]
  - STRESS FRACTURE [None]
  - ERYTHEMA [None]
  - SKIN ULCER [None]
  - TONSILLAR DISORDER [None]
  - REPRODUCTIVE TRACT DISORDER [None]
  - MUSCLE SPASMS [None]
  - BONE PAIN [None]
  - TOOTH FRACTURE [None]
  - OSTEOPOROSIS [None]
  - AORTIC CALCIFICATION [None]
  - PEPTIC ULCER [None]
  - CHOLECYSTITIS [None]
  - FEMUR FRACTURE [None]
  - ANXIETY [None]
  - RADICULOPATHY [None]
